FAERS Safety Report 5266252-3 (Version None)
Quarter: 2007Q1

REPORT INFORMATION
  Report Type: 
  Country: None (occurrence: None)
  Receive Date: 20070315
  Receipt Date: 20070307
  Transmission Date: 20070707
  Serious: Yes (Hospitalization)
  Sender: FDA-Public Use
  Company Number: 230207-1

PATIENT

DRUGS (7)
  1. QUILONORM RETARD [Suspect]
     Dates: start: 19910101, end: 20070101
  2. SOLIAN [Concomitant]
     Dosage: 1TAB AT NIGHT
  3. NOVERIL [Concomitant]
     Dosage: 1TAB IN THE MORNING
  4. ATORVASTATIN CALCIUM [Concomitant]
     Dosage: .5TAB AT NIGHT
  5. UNKNOWN NAME [Concomitant]
     Dosage: .5TAB IN THE MORNING
  6. UNKNOWN NAME [Concomitant]
  7. NORMACOL [Concomitant]

REACTIONS (6)
  - C-REACTIVE PROTEIN INCREASED [None]
  - HAEMATURIA [None]
  - LEUKOCYTURIA [None]
  - NEPHRITIS INTERSTITIAL [None]
  - PROTEIN URINE PRESENT [None]
  - RENAL FAILURE CHRONIC [None]
